FAERS Safety Report 7161675-X (Version None)
Quarter: 2010Q4

REPORT INFORMATION
  Report Type: 
  Country: None (occurrence: None)
  Receive Date: 20101215
  Receipt Date: 20101213
  Transmission Date: 20110411
  Serious: Yes (Hospitalization)
  Sender: FDA-Public Use
  Company Number: JP-PFIZER INC-2010166626

PATIENT
  Age: 66 Year
  Sex: Female

DRUGS (2)
  1. CEFOPERAZONE SODIUM/SULBACTAM SODIUM [Suspect]
     Indication: PNEUMONIA
  2. MINOCYCLINE HYDROCHLORIDE [Concomitant]

REACTIONS (1)
  - PNEUMONIA [None]
